FAERS Safety Report 10209954 (Version 1)
Quarter: 2014Q2

REPORT INFORMATION
  Report Type: Spontaneous
  Country: FR (occurrence: FR)
  Receive Date: 20140602
  Receipt Date: 20140602
  Transmission Date: 20141212
  Serious: Yes (Other)
  Sender: FDA-Public Use
  Company Number: FR-RANBAXY-2014RR-81825

PATIENT
  Sex: Male

DRUGS (1)
  1. AMOXICILLINE ACIDE CLAVULANIQUE RANBAXY 500 MG/62,5 MG ADULTES, COMPRI [Suspect]
     Indication: PRODUCT USED FOR UNKNOWN INDICATION
     Dosage: UNK
     Route: 065
     Dates: start: 2010

REACTIONS (4)
  - Angioedema [Recovered/Resolved]
  - Expired product administered [Recovered/Resolved]
  - Reaction to drug excipients [None]
  - Drug hypersensitivity [None]
